FAERS Safety Report 5927551-2 (Version None)
Quarter: 2008Q4

REPORT INFORMATION
  Report Type: 
  Country: None (occurrence: None)
  Receive Date: 20081023
  Receipt Date: 20081014
  Transmission Date: 20090506
  Serious: Yes (Death, Life-Threatening, Other)
  Sender: FDA-Public Use
  Company Number: GB-JNJFOC-20081002112

PATIENT
  Sex: Female
  Weight: 98 kg

DRUGS (11)
  1. REMICADE [Suspect]
     Indication: RHEUMATOID ARTHRITIS
     Route: 042
  2. SULFASALAZINE [Concomitant]
  3. PREDNISOLONE [Concomitant]
  4. ADIZEM [Concomitant]
  5. ACETAMINOPHEN W/ PROPOXYPHENE HCL [Concomitant]
  6. DIDRONEL [Concomitant]
  7. FUROSEMIDE [Concomitant]
  8. IRBESARTAN [Concomitant]
  9. LANSOPRAZOLE [Concomitant]
  10. LEVOTHYROXINE SODIUM [Concomitant]
  11. VITAMIN E [Concomitant]

REACTIONS (1)
  - MYOCARDIAL INFARCTION [None]
